FAERS Safety Report 7129226-3 (Version None)
Quarter: 2010Q4

REPORT INFORMATION
  Report Type: 
  Country: None (occurrence: None)
  Receive Date: 20101130
  Receipt Date: 20101118
  Transmission Date: 20110411
  Serious: Yes (Hospitalization)
  Sender: FDA-Public Use
  Company Number: US-ASTRAZENECA-2009UW01868

PATIENT
  Age: 51 Year
  Sex: Female

DRUGS (3)
  1. NEXIUM [Suspect]
     Route: 048
  2. NEXIUM [Suspect]
     Route: 048
  3. PRILOSEC [Suspect]
     Route: 048

REACTIONS (7)
  - ABDOMINAL PAIN UPPER [None]
  - CHEST PAIN [None]
  - DRUG DOSE OMISSION [None]
  - DYSPHAGIA [None]
  - DYSPNOEA [None]
  - GASTROINTESTINAL HAEMORRHAGE [None]
  - VOMITING [None]
